FAERS Safety Report 12001424 (Version 1)
Quarter: 2016Q1

REPORT INFORMATION
  Report Type: Spontaneous
  Country: BR (occurrence: BR)
  Receive Date: 20160204
  Receipt Date: 20160204
  Transmission Date: 20160526
  Serious: Yes (Death, Hospitalization)
  Sender: FDA-Public Use
  Company Number: BR-PFIZER INC-2015349775

PATIENT
  Age: 68 Year
  Sex: Male
  Weight: 62 kg

DRUGS (2)
  1. SUTENT [Suspect]
     Active Substance: SUNITINIB MALATE
     Indication: METASTATIC RENAL CELL CARCINOMA
     Dosage: 50 MG, CYCLIC (4 PER 2)
     Route: 048
     Dates: start: 201411, end: 201504
  2. OMEPRAZOLE. [Concomitant]
     Active Substance: OMEPRAZOLE

REACTIONS (12)
  - Metastatic renal cell carcinoma [Fatal]
  - Abdominal pain [Unknown]
  - Nausea [Recovered/Resolved]
  - Pulmonary embolism [Fatal]
  - Pain [Unknown]
  - Anaemia [Unknown]
  - Influenza [Not Recovered/Not Resolved]
  - Flatulence [Unknown]
  - Eating disorder [Recovered/Resolved]
  - Disease progression [Fatal]
  - Cholecystitis infective [Recovered/Resolved]
  - Gait disturbance [Unknown]

NARRATIVE: CASE EVENT DATE: 201501
